FAERS Safety Report 5426390-9 (Version None)
Quarter: 2007Q3

REPORT INFORMATION
  Report Type: 
  Country: None (occurrence: None)
  Receive Date: 20070731
  Receipt Date: 20070413
  Transmission Date: 20080115
  Serious: No
  Sender: FDA-Public Use
  Company Number: 2007PV029105

PATIENT
  Age: 59 Year
  Sex: Male

DRUGS (6)
  1. EXENATIDE (EXENATIDE) PEN, DISPOSABLE [Suspect]
     Indication: TYPE 2 DIABETES MELLITUS
     Dosage: 10 UG, 2/D, SUBCUTANEOUS; 5 UG, 2/D, SUBCUTANEOUS; 10 UG, 2/D, SUBCUTANEOUS; 5 UG, SUBCUTANEOUS
     Route: 058
     Dates: start: 20070111, end: 20070207
  2. EXENATIDE (EXENATIDE) PEN, DISPOSABLE [Suspect]
     Indication: TYPE 2 DIABETES MELLITUS
     Dosage: 10 UG, 2/D, SUBCUTANEOUS; 5 UG, 2/D, SUBCUTANEOUS; 10 UG, 2/D, SUBCUTANEOUS; 5 UG, SUBCUTANEOUS
     Route: 058
     Dates: start: 20070201, end: 20070301
  3. EXENATIDE (EXENATIDE) PEN, DISPOSABLE [Suspect]
     Indication: TYPE 2 DIABETES MELLITUS
     Dosage: 10 UG, 2/D, SUBCUTANEOUS; 5 UG, 2/D, SUBCUTANEOUS; 10 UG, 2/D, SUBCUTANEOUS; 5 UG, SUBCUTANEOUS
     Route: 058
     Dates: start: 20070208
  4. EXENATIDE (EXENATIDE) PEN, DISPOSABLE [Suspect]
     Indication: TYPE 2 DIABETES MELLITUS
     Dosage: 10 UG, 2/D, SUBCUTANEOUS; 5 UG, 2/D, SUBCUTANEOUS; 10 UG, 2/D, SUBCUTANEOUS; 5 UG, SUBCUTANEOUS
     Route: 058
     Dates: start: 20070301
  5. AMARYL [Concomitant]
  6. AVANDAMET (METFORMIN HYDROCHLORIDE, ROSIGILATZONE MALEATE) [Concomitant]

REACTIONS (3)
  - DRUG INEFFECTIVE [None]
  - INCREASED APPETITE [None]
  - NAUSEA [None]
